FAERS Safety Report 18109505 (Version 2)
Quarter: 2021Q1

REPORT INFORMATION
  Report Type: Report from Study
  Country: CA (occurrence: CA)
  Receive Date: 20200804
  Receipt Date: 20210303
  Transmission Date: 20210419
  Serious: Yes (Hospitalization)
  Sender: FDA-Public Use
  Company Number: CA-SHIRE-CA202024072

PATIENT
  Age: 13 Year
  Sex: Male

DRUGS (3)
  1. IDURSULFASE [Suspect]
     Active Substance: IDURSULFASE
     Dosage: 0.5 MILLIGRAM/KILOGRAM, 1X/WEEK (EVERY WEEK)
     Route: 042
     Dates: start: 20090914, end: 20100719
  2. IDURSULFASE [Suspect]
     Active Substance: IDURSULFASE
     Dosage: 0.5 MILLIGRAM/KILOGRAM, 1X/WEEK (EVERY WEEK)
     Route: 042
     Dates: start: 20100726
  3. IDURSULFASE [Suspect]
     Active Substance: IDURSULFASE
     Indication: MUCOPOLYSACCHARIDOSIS II
     Dosage: 0.5 MILLIGRAM/KILOGRAM, 1X/WEEK (EVERY WEEK)
     Route: 042
     Dates: start: 20080813, end: 20090909

REACTIONS (5)
  - Vascular device infection [Unknown]
  - Seizure [Unknown]
  - Respiratory distress [Unknown]
  - Gastrointestinal infection [Unknown]
  - Stridor [Recovered/Resolved]

NARRATIVE: CASE EVENT DATE: 20100810
